FAERS Safety Report 11103737 (Version 1)
Quarter: 2015Q2

REPORT INFORMATION
  Report Type: Spontaneous
  Country: IT (occurrence: None)
  Receive Date: 20150507
  Receipt Date: 20150507
  Transmission Date: 20150821
  Serious: Yes (Other)
  Sender: FDA-Public Use
  Company Number: 8023149

PATIENT
  Sex: Male

DRUGS (2)
  1. EUTIROX (LEVOTHYROXINE SODIUM) [Suspect]
     Active Substance: LEVOTHYROXINE SODIUM
     Indication: AUTOIMMUNE THYROIDITIS
  2. CARDIASPIRINA (ACETYLSALICYLIC ACID) [Concomitant]

REACTIONS (2)
  - Blood thyroid stimulating hormone increased [None]
  - Dysphonia [None]
